FAERS Safety Report 11415574 (Version 1)
Quarter: 2015Q3

REPORT INFORMATION
  Report Type: Spontaneous
  Country: US (occurrence: None)
  Receive Date: 20150824
  Receipt Date: 20150824
  Transmission Date: 20151125
  Serious: No
  Sender: FDA-Public Use
  Company Number: None

PATIENT
  Age: 51 Year
  Sex: Female
  Weight: 102.06 kg

DRUGS (5)
  1. TAMOXIFEN 20 MG [Suspect]
     Active Substance: TAMOXIFEN
     Indication: INTRADUCTAL PROLIFERATIVE BREAST LESION
     Dosage: 1 PILL ONCE DAILY
     Route: 048
     Dates: start: 20131129, end: 20140520
  2. LEVOTHYROXINE. [Concomitant]
     Active Substance: LEVOTHYROXINE
  3. NORETHINDRONE. [Concomitant]
     Active Substance: NORETHINDRONE
  4. VITAMIN D [Concomitant]
     Active Substance: CHOLECALCIFEROL
  5. CALCIUM [Concomitant]
     Active Substance: CALCIUM

REACTIONS (28)
  - Lacrimation increased [None]
  - Eye pain [None]
  - Pain in extremity [None]
  - Gastrointestinal sounds abnormal [None]
  - Pruritus [None]
  - Arthralgia [None]
  - Amenorrhoea [None]
  - Insomnia [None]
  - Diarrhoea [None]
  - Dyspepsia [None]
  - Myalgia [None]
  - Nausea [None]
  - Feeling abnormal [None]
  - Eye swelling [None]
  - Peripheral swelling [None]
  - Weight increased [None]
  - Dizziness [None]
  - Psychiatric symptom [None]
  - Thyroid disorder [None]
  - Anxiety [None]
  - Confusional state [None]
  - Bone pain [None]
  - Irritability [None]
  - Disturbance in attention [None]
  - Vision blurred [None]
  - Skin disorder [None]
  - Depressed mood [None]
  - Impaired work ability [None]

NARRATIVE: CASE EVENT DATE: 20140520
